FAERS Safety Report 13075890 (Version 1)
Quarter: 2016Q4

REPORT INFORMATION
  Report Type: Spontaneous
  Country: FR (occurrence: FR)
  Receive Date: 20161230
  Receipt Date: 20161230
  Transmission Date: 20170207
  Serious: Yes (Hospitalization, Other)
  Sender: FDA-Public Use
  Company Number: FR-ELI_LILLY_AND_COMPANY-FR201612006843

PATIENT
  Age: 63 Year
  Sex: Male
  Weight: 62 kg

DRUGS (36)
  1. LYRICA [Concomitant]
     Active Substance: PREGABALIN
     Dosage: 75 MG, BID
     Route: 048
  2. NOVORAPID [Concomitant]
     Active Substance: INSULIN ASPART
     Dosage: 10 IU, QD
     Route: 065
  3. VELBE [Suspect]
     Active Substance: VINBLASTINE SULFATE
     Dosage: 6 MG/M2, CYCLICAL
     Route: 042
     Dates: start: 20160711
  4. VELBE [Suspect]
     Active Substance: VINBLASTINE SULFATE
     Dosage: UNK, CYCLICAL
     Route: 042
     Dates: start: 20160824
  5. ADRIAMYCIN [Suspect]
     Active Substance: DOXORUBICIN HYDROCHLORIDE
     Dosage: UNK, CYCLICAL
     Route: 042
     Dates: start: 20161005
  6. PLAVIX [Concomitant]
     Active Substance: CLOPIDOGREL BISULFATE
     Dosage: 75 MG, QD
     Route: 048
  7. TAHOR [Concomitant]
     Active Substance: ATORVASTATIN CALCIUM
     Dosage: 40 MG, EACH EVENING
     Route: 048
  8. INEXIUM                            /01479302/ [Concomitant]
     Active Substance: ESOMEPRAZOLE MAGNESIUM
     Dosage: 40 MG, EACH EVENING
     Route: 048
  9. LANTUS [Concomitant]
     Active Substance: INSULIN GLARGINE
     Dosage: 18 IU, EACH EVENING
     Route: 065
  10. VELBE [Suspect]
     Active Substance: VINBLASTINE SULFATE
     Dosage: UNK, CYCLICAL
     Route: 042
     Dates: start: 20161026
  11. GRANULOCYTE COLONY STIMULATING FACTOR [Concomitant]
     Active Substance: GRANULOCYTE COLONY-STIMULATING FACTOR NOS
     Dosage: UNK, UNKNOWN
     Route: 065
     Dates: start: 20161010, end: 20161015
  12. GEMZAR [Suspect]
     Active Substance: GEMCITABINE HYDROCHLORIDE
     Dosage: UNK, CYCLICAL
     Route: 042
     Dates: start: 20161005
  13. ADRIAMYCIN [Suspect]
     Active Substance: DOXORUBICIN HYDROCHLORIDE
     Dosage: UNK, CYCLICAL
     Route: 042
     Dates: start: 20160824
  14. PREDNISONE. [Concomitant]
     Active Substance: PREDNISONE
     Indication: HODGKIN^S DISEASE
     Dosage: 40 MG/M2, CYCLICAL
     Route: 042
     Dates: start: 20160620, end: 20160624
  15. GEMZAR [Suspect]
     Active Substance: GEMCITABINE HYDROCHLORIDE
     Dosage: 800 MG/M2, CYCLICAL
     Route: 042
     Dates: start: 20160711
  16. ADRIAMYCIN [Suspect]
     Active Substance: DOXORUBICIN HYDROCHLORIDE
     Indication: HODGKIN^S DISEASE
     Dosage: 50 MG/M2, CYCLICAL
     Route: 042
     Dates: start: 20160620, end: 20160624
  17. ADRIAMYCIN [Suspect]
     Active Substance: DOXORUBICIN HYDROCHLORIDE
     Dosage: 25 MG/M2, CYCLICAL
     Route: 042
     Dates: start: 20160914
  18. PREDNISONE. [Concomitant]
     Active Substance: PREDNISONE
     Dosage: UNK, CYCLICAL
     Route: 042
     Dates: start: 20160824
  19. GEMZAR [Suspect]
     Active Substance: GEMCITABINE HYDROCHLORIDE
     Dosage: UNK, CYCLICAL
     Route: 042
     Dates: start: 20160824
  20. VELBE [Suspect]
     Active Substance: VINBLASTINE SULFATE
     Indication: HODGKIN^S DISEASE
     Dosage: 6 MG/M2, CYCLICAL
     Route: 042
     Dates: start: 20160620, end: 20160624
  21. PREDNISONE. [Concomitant]
     Active Substance: PREDNISONE
     Dosage: 40 MG/M2, CYCLICAL
     Route: 042
     Dates: start: 20160711
  22. PREDNISONE. [Concomitant]
     Active Substance: PREDNISONE
     Dosage: UNK, CYCLICAL
     Route: 042
     Dates: start: 20161005
  23. CORTANCYL [Concomitant]
     Active Substance: PREDNISONE
     Dosage: 60 MG, UNKNOWN
     Route: 065
     Dates: start: 20160914
  24. PERINDOPRIL ARGININE [Concomitant]
     Active Substance: PERINDOPRIL ARGININE
     Dosage: 2.5 MG, EACH MORNING
     Route: 048
  25. GEMZAR [Suspect]
     Active Substance: GEMCITABINE HYDROCHLORIDE
     Indication: HODGKIN^S DISEASE
     Dosage: 1000 MG/M2, CYCLICAL
     Route: 042
     Dates: start: 20160620, end: 20160624
  26. GEMZAR [Suspect]
     Active Substance: GEMCITABINE HYDROCHLORIDE
     Dosage: UNK, CYCLICAL
     Route: 042
     Dates: start: 20161026
  27. ADRIAMYCIN [Suspect]
     Active Substance: DOXORUBICIN HYDROCHLORIDE
     Dosage: 40 MG/M2, CYCLICAL
     Route: 042
     Dates: start: 20160711
  28. NOVORAPID [Concomitant]
     Active Substance: INSULIN ASPART
     Dosage: 10 IU, EACH EVENING
     Route: 065
  29. GEMZAR [Suspect]
     Active Substance: GEMCITABINE HYDROCHLORIDE
     Dosage: 500 MG/M2, CYCLICAL
     Route: 042
     Dates: start: 20160914
  30. GEMZAR [Suspect]
     Active Substance: GEMCITABINE HYDROCHLORIDE
     Dosage: UNK, CYCLICAL
     Route: 042
     Dates: start: 20161005
  31. VELBE [Suspect]
     Active Substance: VINBLASTINE SULFATE
     Dosage: 6 MG/M2, CYCLICAL
     Route: 042
     Dates: start: 20160914
  32. VELBE [Suspect]
     Active Substance: VINBLASTINE SULFATE
     Dosage: UNK, CYCLICAL
     Route: 042
     Dates: start: 20161005
  33. ADRIAMYCIN [Suspect]
     Active Substance: DOXORUBICIN HYDROCHLORIDE
     Dosage: UNK, CYCLICAL
     Route: 042
     Dates: start: 20161026
  34. PREDNISONE. [Concomitant]
     Active Substance: PREDNISONE
     Dosage: UNK, CYCLICAL
     Route: 042
     Dates: start: 20161026
  35. NOVORAPID [Concomitant]
     Active Substance: INSULIN ASPART
     Dosage: 18 IU, EACH MORNING
     Route: 065
  36. GRANULOCYTE COLONY STIMULATING FACTOR [Concomitant]
     Active Substance: GRANULOCYTE COLONY-STIMULATING FACTOR NOS
     Indication: NEUTROPENIA
     Dosage: UNK UNK, UNKNOWN
     Route: 065
     Dates: start: 20160627, end: 20160701

REACTIONS (16)
  - Pyrexia [Unknown]
  - Mucosal inflammation [Unknown]
  - Catheter site abscess [Unknown]
  - Erysipelas [Unknown]
  - Febrile bone marrow aplasia [Recovered/Resolved]
  - Device related sepsis [Unknown]
  - Abdominal pain [Unknown]
  - Off label use [Unknown]
  - Constipation [Unknown]
  - Febrile bone marrow aplasia [Recovered/Resolved]
  - Chills [Unknown]
  - Mouth ulceration [Unknown]
  - Oral candidiasis [Unknown]
  - Neutropenia [Unknown]
  - Febrile bone marrow aplasia [Recovered/Resolved]
  - Agranulocytosis [Unknown]

NARRATIVE: CASE EVENT DATE: 201606
